FAERS Safety Report 5171695-2 (Version None)
Quarter: 2006Q4

REPORT INFORMATION
  Report Type: 
  Country: None (occurrence: None)
  Receive Date: 20061205
  Receipt Date: 20061120
  Transmission Date: 20070319
  Serious: Yes (Other)
  Sender: FDA-Public Use
  Company Number: L06-USA-04934-01

PATIENT

DRUGS (5)
  1. CARBAMAZEPINE [Suspect]
  2. VENLAFAXINE HCL [Suspect]
  3. TOPIRAMATE [Suspect]
  4. DIVALPROEX SODIUM [Suspect]
  5. RISPERIDONE [Suspect]

REACTIONS (3)
  - MULTIPLE DRUG OVERDOSE [None]
  - NEUROLEPTIC MALIGNANT SYNDROME [None]
  - SEROTONIN SYNDROME [None]
